FAERS Safety Report 14664371 (Version 3)
Quarter: 2018Q2

REPORT INFORMATION
  Report Type: Spontaneous
  Country: US (occurrence: US)
  Receive Date: 20180321
  Receipt Date: 20180409
  Transmission Date: 20180711
  Serious: Yes (Death)
  Sender: FDA-Public Use
  Company Number: US-LUNDBECK-DKLU2045855

PATIENT
  Age: 75 Year
  Sex: Male

DRUGS (5)
  1. NORTHERA [Suspect]
     Active Substance: DROXIDOPA
     Indication: ORTHOSTATIC HYPOTENSION
     Route: 048
  2. NORTHERA [Suspect]
     Active Substance: DROXIDOPA
     Indication: PARKINSON^S DISEASE
     Route: 048
  3. NORTHERA [Suspect]
     Active Substance: DROXIDOPA
     Route: 048
     Dates: start: 201802
  4. NORTHERA [Suspect]
     Active Substance: DROXIDOPA
     Route: 048
     Dates: start: 201802
  5. NORTHERA [Suspect]
     Active Substance: DROXIDOPA
     Dosage: FORM STRENGTH: 1 300 MG CAPSULE AND 1 200 MG CAPSULE TO EQUAL A DOSE OF 500 MG
     Route: 048
     Dates: start: 201802

REACTIONS (1)
  - Death [Fatal]

NARRATIVE: CASE EVENT DATE: 20180302
